FAERS Safety Report 15155764 (Version 1)
Quarter: 2018Q3

REPORT INFORMATION
  Report Type: Spontaneous
  Country: DE (occurrence: DE)
  Receive Date: 20180717
  Receipt Date: 20180717
  Transmission Date: 20181010
  Serious: Yes (Death, Hospitalization)
  Sender: FDA-Public Use
  Company Number: DE-US WORLDMEDS, LLC-STA_00018734

PATIENT
  Age: 73 Year
  Sex: Male

DRUGS (6)
  1. CABASERIL [Concomitant]
     Active Substance: CABERGOLINE
     Indication: PARKINSON^S DISEASE
     Dates: start: 2005
  2. COMTESS [Concomitant]
     Active Substance: ENTACAPONE
     Indication: PARKINSON^S DISEASE
     Dosage: 4X1
     Dates: start: 2005
  3. AMANTADINE. [Concomitant]
     Active Substance: AMANTADINE HYDROCHLORIDE
     Indication: PARKINSON^S DISEASE
     Dosage: 3X1
     Dates: start: 2005
  4. MADOPAR LT [Concomitant]
     Active Substance: BENSERAZIDE HYDROCHLORIDE\LEVODOPA
     Indication: PARKINSON^S DISEASE
     Dosage: 1X10
     Dates: start: 2005
  5. APOMORPHINE HYDROCHLORIDE [Suspect]
     Active Substance: APOMORPHINE HYDROCHLORIDE
     Indication: PARKINSON^S DISEASE
     Dosage: FROM 07:00AM TO 10:00PM AT A DOSE OF 6.5MG/HOUR
     Route: 058
     Dates: start: 20080515
  6. CLOZAPINE. [Concomitant]
     Active Substance: CLOZAPINE
     Indication: PARKINSON^S DISEASE
     Dates: start: 2005

REACTIONS (3)
  - Abdominal neoplasm [Fatal]
  - Metastases to pancreas [Not Recovered/Not Resolved]
  - Metastases to liver [Not Recovered/Not Resolved]

NARRATIVE: CASE EVENT DATE: 201003
